FAERS Safety Report 9902548 (Version 3)
Quarter: 2015Q3

REPORT INFORMATION
  Report Type: Spontaneous
  Country: US (occurrence: US)
  Receive Date: 20140217
  Receipt Date: 20150810
  Transmission Date: 20151125
  Serious: No
  Sender: FDA-Public Use
  Company Number: US-GILEAD-2011-0043823

PATIENT
  Age: 70 Year
  Sex: Female

DRUGS (3)
  1. LETAIRIS [Suspect]
     Active Substance: AMBRISENTAN
     Indication: LUNG DISORDER
  2. LETAIRIS [Suspect]
     Active Substance: AMBRISENTAN
     Indication: PULMONARY HYPERTENSION
     Route: 048
     Dates: start: 20110817, end: 20110908
  3. LETAIRIS [Suspect]
     Active Substance: AMBRISENTAN
     Indication: CARDIAC DISORDER

REACTIONS (3)
  - Nasal ulcer [Not Recovered/Not Resolved]
  - Swelling [Not Recovered/Not Resolved]
  - Stomatitis [Not Recovered/Not Resolved]

NARRATIVE: CASE EVENT DATE: 20110817
